FAERS Safety Report 22119408 (Version 1)
Quarter: 2023Q1

REPORT INFORMATION
  Report Type: Spontaneous
  Country: US (occurrence: None)
  Receive Date: 20230320
  Receipt Date: 20230320
  Transmission Date: 20230418
  Serious: Yes (Life-Threatening, Hospitalization)
  Sender: FDA-Public Use
  Company Number: None

PATIENT
  Age: 37 Year
  Sex: Female
  Weight: 310 kg

DRUGS (6)
  1. JARDIANCE [Suspect]
     Active Substance: EMPAGLIFLOZIN
     Indication: Type 2 diabetes mellitus
     Dosage: OTHER QUANTITY : 1 TABLET(S);?
     Route: 048
     Dates: start: 20230306, end: 20230312
  2. BUPROPION [Concomitant]
     Active Substance: BUPROPION
  3. HUMALOG [Concomitant]
     Active Substance: INSULIN LISPRO
  4. TRESIBA [Concomitant]
     Active Substance: INSULIN DEGLUDEC
  5. Metformin + Mounjaro [Concomitant]
  6. Adult vitamin [Concomitant]

REACTIONS (1)
  - Euglycaemic diabetic ketoacidosis [None]

NARRATIVE: CASE EVENT DATE: 20230312
